FAERS Safety Report 20171991 (Version 3)
Quarter: 2022Q1

REPORT INFORMATION
  Report Type: Report from Study
  Country: DE (occurrence: DE)
  Receive Date: 20211210
  Receipt Date: 20220127
  Transmission Date: 20220423
  Serious: Yes (Hospitalization)
  Sender: FDA-Public Use
  Company Number: DE-ABBVIE-21P-062-4185479-00

PATIENT
  Age: 81 Year
  Sex: Male

DRUGS (24)
  1. VENETOCLAX [Suspect]
     Active Substance: VENETOCLAX
     Indication: Myelodysplastic syndrome
     Dosage: DAYS 1  14 OF EACH CYCLE
     Route: 048
     Dates: start: 20201214
  2. AZACITIDINE [Suspect]
     Active Substance: AZACITIDINE
     Indication: Myelodysplastic syndrome
     Dosage: DAYS 1  7 OF EACH CYCLE
     Route: 058
     Dates: start: 20201214
  3. VITAMIN D [Concomitant]
     Active Substance: VITAMIN D NOS
     Indication: Vitamin supplementation
     Route: 048
     Dates: start: 20200813
  4. PROSTAGUT [Concomitant]
     Indication: Benign prostatic hyperplasia
     Dosage: 160/120 MG
     Route: 048
     Dates: start: 20101215
  5. LUTEIN [Concomitant]
     Active Substance: LUTEIN
     Indication: Dry eye
     Route: 048
     Dates: start: 2012
  6. PANTOPRAZOLE SODIUM [Concomitant]
     Active Substance: PANTOPRAZOLE SODIUM
     Indication: Gastritis
     Route: 048
     Dates: start: 20210121
  7. PANTOPRAZOLE SODIUM [Concomitant]
     Active Substance: PANTOPRAZOLE SODIUM
     Route: 048
     Dates: start: 20210628, end: 20210702
  8. PANTOPRAZOLE SODIUM [Concomitant]
     Active Substance: PANTOPRAZOLE SODIUM
     Route: 048
     Dates: start: 20210703
  9. MAGALDRATE [Concomitant]
     Active Substance: MAGALDRATE
     Indication: Gastritis
     Route: 048
     Dates: start: 20210121
  10. LACTOBACILLUS UND BIFIDOBACTERIUM [Concomitant]
     Indication: Supplementation therapy
     Route: 048
     Dates: start: 20201230
  11. GRANISETRON BETA [Concomitant]
     Indication: Prophylaxis of nausea and vomiting
     Dosage: ON AZACITIDINE DAYS
     Route: 048
     Dates: start: 20201214
  12. SYSTANE (HYPROMELLOSE 2910 (4000 MPA.S)) [Concomitant]
     Active Substance: HYPROMELLOSE 2910 (4000 MPA.S)
     Indication: Dry eye
     Route: 047
     Dates: start: 20200502
  13. TORSEMIDE [Concomitant]
     Active Substance: TORSEMIDE
     Indication: Haematoma
     Route: 048
     Dates: start: 20210301
  14. TORSEMIDE [Concomitant]
     Active Substance: TORSEMIDE
     Route: 048
     Dates: start: 20210412
  15. POTASSIUM CHLORIDE [Concomitant]
     Active Substance: POTASSIUM CHLORIDE
     Indication: Prophylaxis
     Route: 048
     Dates: start: 20210301
  16. ASPIRIN [Concomitant]
     Active Substance: ASPIRIN
     Indication: Coronary artery disease
     Route: 048
     Dates: start: 20210301
  17. ASPIRIN [Concomitant]
     Active Substance: ASPIRIN
     Route: 048
     Dates: start: 20210411
  18. CEFUROXIME [Concomitant]
     Active Substance: CEFUROXIME
     Indication: Infection prophylaxis
     Route: 048
     Dates: start: 20210329
  19. NOXAFIL [Concomitant]
     Active Substance: POSACONAZOLE
     Indication: Neutropenic sepsis
     Dosage: 300 MG/250 ML/H
     Route: 042
     Dates: start: 20210407
  20. ELECTROLYTES NOS\MINERALS [Concomitant]
     Active Substance: ELECTROLYTES NOS\MINERALS
     Indication: Neutropenic sepsis
     Dosage: 100 ML/H
     Route: 042
     Dates: start: 20210407
  21. POSACONAZOLE [Concomitant]
     Active Substance: POSACONAZOLE
     Indication: Neutropenic sepsis
     Route: 048
     Dates: start: 20210409
  22. POTASSIUM CHLORIDE [Concomitant]
     Active Substance: POTASSIUM CHLORIDE
     Indication: Prophylaxis
     Route: 048
     Dates: start: 20210410
  23. TAMSULOSIN 1A [Concomitant]
     Indication: Benign prostatic hyperplasia
     Route: 048
     Dates: start: 20210411
  24. AMPHO-MORONAL [Concomitant]
     Active Substance: AMPHOTERICIN B
     Indication: Mucosal infection
     Route: 048
     Dates: start: 20210415

REACTIONS (1)
  - Mastoiditis [Recovered/Resolved]

NARRATIVE: CASE EVENT DATE: 20211202
